FAERS Safety Report 5463889-3 (Version None)
Quarter: 2007Q3

REPORT INFORMATION
  Report Type: 
  Country: None (occurrence: None)
  Receive Date: 20070814
  Receipt Date: 20070330
  Transmission Date: 20080115
  Serious: Yes (Hospitalization)
  Sender: FDA-Public Use
  Company Number: MEDI-0005639

PATIENT
  Age: 9 Month
  Sex: Female
  Weight: 7.8019 kg

DRUGS (19)
  1. SYNAGIS [Suspect]
     Dosage: SEE IMAGE
     Route: 030
     Dates: start: 20061024, end: 20061222
  2. SYNAGIS [Suspect]
     Dosage: SEE IMAGE
     Route: 030
     Dates: start: 20061024
  3. SYNAGIS [Suspect]
     Dosage: SEE IMAGE
     Route: 030
     Dates: start: 20061124
  4. SYNAGIS [Suspect]
     Dosage: SEE IMAGE
     Route: 030
     Dates: start: 20070119
  5. SYNAGIS [Suspect]
     Dosage: SEE IMAGE
     Route: 030
     Dates: start: 20070219
  6. SYNAGIS [Suspect]
     Dosage: SEE IMAGE
     Route: 030
     Dates: start: 20070319
  7. SYNAGIS [Suspect]
  8. SYNAGIS [Suspect]
  9. SYNAGIS [Suspect]
  10. SYNAGIS [Suspect]
  11. SYNAGIS [Suspect]
  12. SYNAGIS [Suspect]
  13. SYNAGIS [Suspect]
  14. SYNAGIS [Suspect]
  15. SYNAGIS [Suspect]
  16. SYNAGIS [Suspect]
  17. PULMICORT [Concomitant]
  18. VENTOLIN [Concomitant]
  19. AUGMENTIN '125' [Concomitant]

REACTIONS (6)
  - BRONCHIAL HYPERREACTIVITY [None]
  - EAR INFECTION [None]
  - PYREXIA [None]
  - RESPIRATORY SYNCYTIAL VIRUS INFECTION [None]
  - UPPER RESPIRATORY TRACT INFECTION [None]
  - VOMITING [None]
